FAERS Safety Report 9503915 (Version 1)
Quarter: 2013Q3

REPORT INFORMATION
  Report Type: Spontaneous
  Country: US (occurrence: None)
  Receive Date: 20130905
  Receipt Date: 20130905
  Transmission Date: 20140515
  Serious: Yes (Other)
  Sender: FDA-Public Use
  Company Number: None

PATIENT
  Age: 27 Year
  Sex: Female
  Weight: 52.16 kg

DRUGS (4)
  1. ADVIL [Suspect]
     Indication: HEADACHE
  2. ADVIL [Suspect]
     Indication: DYSMENORRHOEA
  3. IBUPROFEN 200MG [Concomitant]
  4. IBUPROFEN 200MG [Concomitant]
     Indication: DYSMENORRHOEA

REACTIONS (4)
  - Ovarian cyst [None]
  - Vaginal haemorrhage [None]
  - Muscle spasms [None]
  - Anovulatory cycle [None]
